FAERS Safety Report 15568913 (Version 1)
Quarter: 2018Q4

REPORT INFORMATION
  Report Type: Spontaneous
  Country: US (occurrence: US)
  Receive Date: 20181031
  Receipt Date: 20181031
  Transmission Date: 20190205
  Serious: Yes (Disabling, Other)
  Sender: FDA-Public Use
  Company Number: US-DRREDDYS-USA/USA/18/0105120

PATIENT
  Age: 81 Year
  Sex: Female
  Weight: 66 kg

DRUGS (3)
  1. DOANS PAIN RELIEVING [Suspect]
     Active Substance: LIDOCAINE\MENTHOL
     Indication: BACK PAIN
     Route: 065
     Dates: start: 20181022
  2. TRAMADOL. [Concomitant]
     Active Substance: TRAMADOL
     Indication: OSTEOARTHRITIS
     Route: 065
  3. TYLENOL [Concomitant]
     Active Substance: ACETAMINOPHEN
     Indication: OSTEOARTHRITIS
     Route: 065

REACTIONS (4)
  - Wrong technique in product usage process [Unknown]
  - Pain in extremity [Recovered/Resolved]
  - Application site pain [Recovered/Resolved]
  - Loss of personal independence in daily activities [Recovered/Resolved]

NARRATIVE: CASE EVENT DATE: 20181022
